FAERS Safety Report 5453243-2 (Version None)
Quarter: 2007Q3

REPORT INFORMATION
  Report Type: 
  Country: None (occurrence: None)
  Receive Date: 20070914
  Receipt Date: 20070906
  Transmission Date: 20080115
  Serious: Yes (Hospitalization)
  Sender: FDA-Public Use
  Company Number: FR-PFIZER INC-2007075397

PATIENT
  Sex: Female

DRUGS (9)
  1. XANAX [Suspect]
     Route: 048
     Dates: start: 20070705, end: 20070723
  2. NORSET [Suspect]
     Route: 048
     Dates: start: 20070705, end: 20070723
  3. MEMANTINE HCL [Suspect]
     Indication: DEMENTIA ALZHEIMER'S TYPE
     Route: 048
     Dates: start: 20070705, end: 20070723
  4. MEPROBAMATE [Concomitant]
  5. HALOPERIDOL [Concomitant]
     Dates: end: 20070705
  6. RIVASTIGMINE [Concomitant]
     Dates: end: 20070705
  7. ZOPICLONE [Concomitant]
     Dates: end: 20070705
  8. TRIMEBUTINE MALEATE [Concomitant]
     Dates: end: 20070705
  9. CITALOPRAM HYDROBROMIDE [Concomitant]
     Dates: end: 20070705

REACTIONS (1)
  - RENAL FAILURE ACUTE [None]
